FAERS Safety Report 11199170 (Version 1)
Quarter: 2015Q2

REPORT INFORMATION
  Report Type: Spontaneous
  Country: BR (occurrence: None)
  Receive Date: 20150616
  Receipt Date: 20150616
  Transmission Date: 20150821
  Serious: Yes (Hospitalization, Congenital Anomaly)
  Sender: FDA-Public Use
  Company Number: IPC201506-000372

PATIENT
  Sex: Male

DRUGS (1)
  1. WARFARIN (WARFARIN) (WARFARIN) [Suspect]
     Active Substance: WARFARIN

REACTIONS (2)
  - Foetal warfarin syndrome [None]
  - Foetal exposure during pregnancy [None]
